FAERS Safety Report 11819675 (Version 1)
Quarter: 2015Q4

REPORT INFORMATION
  Report Type: Spontaneous
  Country: US (occurrence: US)
  Receive Date: 20151210
  Receipt Date: 20151210
  Transmission Date: 20160305
  Serious: No
  Sender: FDA-Public Use
  Company Number: US-JNJFOC-20151119205

PATIENT
  Sex: Male

DRUGS (3)
  1. TOPAMAX [Suspect]
     Active Substance: TOPIRAMATE
     Indication: MIGRAINE
     Dosage: 15 MG IN MORNING, AND 30 MG NIGHT
     Route: 048
     Dates: start: 2012, end: 2013
  2. TOPAMAX [Suspect]
     Active Substance: TOPIRAMATE
     Indication: MIGRAINE
     Dosage: 30 MG IN MORNING AND 30 MG NIGHT
     Route: 048
     Dates: start: 201406, end: 201410
  3. TOPAMAX [Suspect]
     Active Substance: TOPIRAMATE
     Indication: MIGRAINE
     Dosage: 30 MG IN MORNING, AND 30 MG NIGHT/
     Route: 048
     Dates: start: 2013, end: 2014

REACTIONS (10)
  - Off label use [Unknown]
  - Anxiety [Unknown]
  - Migraine [Unknown]
  - Erythema [Recovered/Resolved]
  - Bradyphrenia [Not Recovered/Not Resolved]
  - Hypohidrosis [Recovered/Resolved]
  - Disturbance in attention [Not Recovered/Not Resolved]
  - Memory impairment [Not Recovered/Not Resolved]
  - Frustration [Unknown]
  - Thirst [Recovered/Resolved]

NARRATIVE: CASE EVENT DATE: 2012
